APPROVED DRUG PRODUCT: ZYLET
Active Ingredient: LOTEPREDNOL ETABONATE; TOBRAMYCIN
Strength: 0.5%;0.3%
Dosage Form/Route: SUSPENSION/DROPS;OPHTHALMIC
Application: N050804 | Product #001 | TE Code: AB
Applicant: BAUSCH AND LOMB INC
Approved: Dec 14, 2004 | RLD: Yes | RS: Yes | Type: RX